FAERS Safety Report 14529000 (Version 5)
Quarter: 2019Q2

REPORT INFORMATION
  Report Type: Spontaneous
  Country: US (occurrence: US)
  Receive Date: 20180214
  Receipt Date: 20190429
  Transmission Date: 20190711
  Serious: No
  Sender: FDA-Public Use
  Company Number: US-PFIZER INC-2018061671

PATIENT
  Age: 67 Year
  Sex: Female
  Weight: 52.16 kg

DRUGS (1)
  1. PREMARIN [Suspect]
     Active Substance: ESTROGENS, CONJUGATED
     Indication: ATROPHIC VULVOVAGINITIS
     Dosage: 1 G, DAILY (FOR 7 DAYS THEN ONCE A MONTH)
     Dates: start: 20180201, end: 20180206

REACTIONS (6)
  - Vulvovaginal erythema [Recovered/Resolved]
  - Dermatitis allergic [Unknown]
  - Vulvovaginal swelling [Not Recovered/Not Resolved]
  - Urinary tract infection [Unknown]
  - Urethral disorder [Unknown]
  - Product use issue [Unknown]

NARRATIVE: CASE EVENT DATE: 201802
